FAERS Safety Report 8358009-1 (Version None)
Quarter: 2012Q2

REPORT INFORMATION
  Report Type: 
  Country: None (occurrence: None)
  Receive Date: 20120514
  Receipt Date: 20120509
  Transmission Date: 20120825
  Serious: Yes (Death)
  Sender: FDA-Public Use
  Company Number: US-CELGENEUS-163-21880-12051169

PATIENT
  Age: 78 Year
  Sex: Female

DRUGS (5)
  1. DEXAMETHASONE [Concomitant]
     Route: 065
  2. REVLIMID [Suspect]
     Indication: MULTIPLE MYELOMA
     Dosage: 15 MILLIGRAM
     Route: 048
     Dates: start: 20071001, end: 20111101
  3. DIGOXIN [Concomitant]
     Route: 065
  4. VITAMIN D2 [Concomitant]
     Route: 065
  5. LEVOTHROID [Concomitant]
     Route: 065

REACTIONS (1)
  - DEATH [None]
